FAERS Safety Report 11823672 (Version 3)
Quarter: 2018Q1

REPORT INFORMATION
  Report Type: Other
  Country: US (occurrence: US)
  Receive Date: 20151210
  Receipt Date: 20180130
  Transmission Date: 20180508
  Serious: Yes (Hospitalization)
  Sender: FDA-Public Use
  Company Number: US-ACORDA-ACO_119858_2015

PATIENT
  Sex: Female
  Weight: 63.49 kg

DRUGS (3)
  1. BETASERON [Concomitant]
     Active Substance: INTERFERON BETA-1B
     Indication: PRODUCT USED FOR UNKNOWN INDICATION
  2. ANTIBIOTICS [Suspect]
     Active Substance: UNSPECIFIED INGREDIENT
     Indication: TOOTHACHE
     Dosage: UNK
     Route: 065
  3. AMPYRA [Suspect]
     Active Substance: DALFAMPRIDINE
     Indication: MULTIPLE SCLEROSIS
     Dosage: 10 MG, BID
     Route: 048

REACTIONS (12)
  - Muscle spasticity [Unknown]
  - Gait inability [Recovered/Resolved]
  - Back pain [Not Recovered/Not Resolved]
  - Immobile [Recovered/Resolved]
  - Gastric infection [Recovered/Resolved]
  - Diarrhoea [Unknown]
  - Gait disturbance [Unknown]
  - Hypoaesthesia [Unknown]
  - Asthenia [Unknown]
  - Toothache [Recovered/Resolved]
  - Urinary tract infection [Unknown]
  - Balance disorder [Unknown]
